FAERS Safety Report 26159108 (Version 1)
Quarter: 2025Q4

REPORT INFORMATION
  Report Type: Spontaneous
  Country: US (occurrence: US)
  Receive Date: 20251216
  Receipt Date: 20251216
  Transmission Date: 20260117
  Serious: Yes (Hospitalization, Other)
  Sender: BAXTER
  Company Number: US-BAXTER-2025BAX025787

PATIENT
  Age: 72 Year
  Sex: Male

DRUGS (4)
  1. VANCOMYCIN [Suspect]
     Active Substance: VANCOMYCIN
     Indication: Enterobacter infection
     Dosage: SIX-WEEK COURSE
     Route: 042
  2. VANCOMYCIN [Suspect]
     Active Substance: VANCOMYCIN
     Indication: Enterococcal infection
  3. CEFEPIME [Concomitant]
     Active Substance: CEFEPIME HYDROCHLORIDE
     Indication: Enterobacter infection
     Dosage: SIX-WEEK COURSE
     Route: 042
  4. CEFEPIME [Concomitant]
     Active Substance: CEFEPIME HYDROCHLORIDE
     Indication: Enterococcal infection

REACTIONS (6)
  - Autoimmune haemolytic anaemia [Unknown]
  - Haemoglobin decreased [Recovered/Resolved]
  - Acute kidney injury [Not Recovered/Not Resolved]
  - Drug level increased [Unknown]
  - Thrombocytopenia [Unknown]
  - Renal tubular injury [Not Recovered/Not Resolved]
